FAERS Safety Report 5182187-9 (Version None)
Quarter: 2006Q4

REPORT INFORMATION
  Report Type: 
  Country: None (occurrence: None)
  Receive Date: 20061220
  Receipt Date: 20060619
  Transmission Date: 20070319
  Serious: No
  Sender: FDA-Public Use
  Company Number: US-GLAXOSMITHKLINE-A0609374A

PATIENT
  Age: 76 Year
  Sex: Male

DRUGS (4)
  1. COMMIT [Suspect]
     Dates: start: 20060618, end: 20060618
  2. CIMETIDINE [Concomitant]
  3. COZAAR [Concomitant]
  4. LESCOL [Concomitant]

REACTIONS (1)
  - NAUSEA [None]
